FAERS Safety Report 9220973 (Version 2)
Quarter: 2013Q4

REPORT INFORMATION
  Report Type: Spontaneous
  Country: GB (occurrence: GB)
  Receive Date: 20130409
  Receipt Date: 20131011
  Transmission Date: 20140711
  Serious: Yes (Hospitalization)
  Sender: FDA-Public Use
  Company Number: PHHY2013GB032740

PATIENT
  Age: 60 Year
  Sex: Male

DRUGS (11)
  1. TRAMADOL [Suspect]
  2. AMITRIPTYLINE [Suspect]
  3. FENOFIBRATE [Concomitant]
  4. GABAPENTIN [Concomitant]
  5. QUININE SULPHATE [Concomitant]
  6. HYOSCINE BUTYLBROMIDE [Concomitant]
  7. SPIRONOLACTONE [Concomitant]
  8. ASPIRIN [Concomitant]
  9. CHLORPHENAMINE [Concomitant]
  10. OMEPRAZOLE [Concomitant]
     Dosage: 40 MG, BID
  11. MOVICOL [Concomitant]

REACTIONS (8)
  - Balance disorder [Recovered/Resolved]
  - Fall [Recovered/Resolved]
  - Headache [Recovered/Resolved]
  - Vertigo [Recovered/Resolved]
  - Angiopathy [Recovered/Resolved]
  - Blood pressure decreased [Recovered/Resolved]
  - Dysarthria [Recovered/Resolved]
  - Tremor [Recovered/Resolved]
